FAERS Safety Report 7645278-6 (Version None)
Quarter: 2011Q3

REPORT INFORMATION
  Report Type: 
  Country: None (occurrence: None)
  Receive Date: 20110729
  Receipt Date: 20110718
  Transmission Date: 20111222
  Serious: Yes (Hospitalization, Other)
  Sender: FDA-Public Use
  Company Number: US-PFIZER INC-2011151335

PATIENT
  Age: 20 Year
  Sex: Male

DRUGS (8)
  1. CYCLOPHOSPHAMIDE [Suspect]
     Dosage: 300 MG/M2, METER 2/1 DAY
     Route: 042
     Dates: start: 20110422, end: 20110425
  2. MESNA [Suspect]
     Indication: CHRONIC MYELOID LEUKAEMIA
     Dosage: 600 MG/M2, UNK
     Route: 042
     Dates: start: 20110422, end: 20110425
  3. DOXORUBICIN HCL [Suspect]
     Indication: CHRONIC MYELOID LEUKAEMIA
     Dosage: 50 MG/M2, UNK
     Route: 042
     Dates: start: 20110422, end: 20110425
  4. DEXAMETHASONE SODIUM POSPHATE [Suspect]
     Indication: CHRONIC LEUKAEMIA
     Dosage: 40 MG, UNK
     Route: 048
     Dates: start: 20110422, end: 20110505
  5. SPRYCEL [Suspect]
     Indication: CHRONIC LEUKAEMIA
     Dosage: 440 MG, UNK
     Route: 048
     Dates: start: 20110422, end: 20110522
  6. METHOTREXATE [Suspect]
     Indication: CHRONIC MYELOID LEUKAEMIA
     Dosage: 12 MG, TOTAL
     Route: 042
     Dates: start: 20110422, end: 20110513
  7. CYTARABINE [Suspect]
     Indication: CHRONIC MYELOID LEUKAEMIA
     Dosage: 100 MG, TOTAL
     Route: 042
     Dates: start: 20110422, end: 20110518
  8. VINCRISTINE SULFATE [Suspect]
     Indication: CHRONIC MYELOID LEUKAEMIA
     Dosage: 2 MG, UNK
     Route: 042
     Dates: start: 20110422, end: 20110502

REACTIONS (3)
  - NEUTROPHIL COUNT DECREASED [None]
  - FEBRILE NEUTROPENIA [None]
  - THROMBOCYTOPENIA [None]
